FAERS Safety Report 9229944 (Version 1)
Quarter: 2013Q2

REPORT INFORMATION
  Report Type: Spontaneous
  Country: US (occurrence: US)
  Receive Date: 20130415
  Receipt Date: 20130415
  Transmission Date: 20140414
  Serious: Yes (Hospitalization)
  Sender: FDA-Public Use
  Company Number: US-JNJFOC-20130403659

PATIENT
  Sex: Female

DRUGS (1)
  1. DOXORUBICIN HYDROCHLORIDE (DOXIL) [Suspect]
     Indication: OVARIAN CANCER
     Route: 042
     Dates: start: 201303, end: 2013

REACTIONS (3)
  - Hypertension [Recovered/Resolved]
  - Facial pain [Recovered/Resolved]
  - Chest pain [Recovered/Resolved]
